FAERS Safety Report 8433142-4 (Version None)
Quarter: 2012Q2

REPORT INFORMATION
  Report Type: 
  Country: None (occurrence: None)
  Receive Date: 20120613
  Receipt Date: 20120608
  Transmission Date: 20120825
  Serious: Yes (Hospitalization)
  Sender: FDA-Public Use
  Company Number: AR-ROCHE-1077422

PATIENT
  Sex: Female

DRUGS (1)
  1. LUCENTIS [Suspect]
     Indication: MACULOPATHY
     Dosage: THE PATIENT RECEIVED THREE AMPOULES.
     Dates: start: 20110101

REACTIONS (2)
  - TACHYCARDIA [None]
  - INFLUENZA [None]
